FAERS Safety Report 24422759 (Version 1)
Quarter: 2024Q4

REPORT INFORMATION
  Report Type: Spontaneous
  Country: FR (occurrence: FR)
  Receive Date: 20241010
  Receipt Date: 20241010
  Transmission Date: 20250114
  Serious: Yes (Hospitalization)
  Sender: PFIZER
  Company Number: None

PATIENT
  Age: 44 Year
  Sex: Male

DRUGS (2)
  1. VORICONAZOLE [Interacting]
     Active Substance: VORICONAZOLE
     Indication: Infection
     Dosage: 200 MG, 1X/DAY
     Route: 048
     Dates: start: 20240724, end: 20240902
  2. METHADONE HYDROCHLORIDE [Interacting]
     Active Substance: METHADONE HYDROCHLORIDE
     Indication: Drug dependence
     Dosage: 80 MG, 1X/DAY
     Route: 048
     Dates: start: 20240724, end: 20240902

REACTIONS (5)
  - Drug interaction [Recovering/Resolving]
  - Respiratory acidosis [Recovering/Resolving]
  - Miosis [Recovering/Resolving]
  - Coma [Recovering/Resolving]
  - Off label use [Unknown]

NARRATIVE: CASE EVENT DATE: 20240724
